FAERS Safety Report 6988448-2 (Version None)
Quarter: 2010Q3

REPORT INFORMATION
  Report Type: 
  Country: None (occurrence: None)
  Receive Date: 20100916
  Receipt Date: 20100907
  Transmission Date: 20110219
  Serious: Yes (Hospitalization, Other)
  Sender: FDA-Public Use
  Company Number: GB-TEVA-247925ISR

PATIENT
  Age: 36 Year
  Sex: Female
  Weight: 54 kg

DRUGS (7)
  1. DIHYDROCODEINE [Suspect]
  2. LANSOPRAZOLE [Suspect]
  3. PROPRANOLOL [Suspect]
  4. SERTRALINE HYDROCHLORIDE [Suspect]
  5. ARIPIPRAZOLE [Suspect]
  6. LAMOTRIGINE [Suspect]
     Indication: EPILEPSY
     Route: 048
     Dates: start: 20040101
  7. NORETHISTERONE [Suspect]

REACTIONS (5)
  - CHOLESTASIS OF PREGNANCY [None]
  - CONVULSION [None]
  - DRUG EXPOSURE DURING PREGNANCY [None]
  - LIVE BIRTH [None]
  - PREMATURE LABOUR [None]
